FAERS Safety Report 6496485-X (Version None)
Quarter: 2009Q4

REPORT INFORMATION
  Report Type: 
  Country: None (occurrence: None)
  Receive Date: 20091125
  Receipt Date: 20081010
  Transmission Date: 20100525
  Serious: Yes (Hospitalization)
  Sender: FDA-Public Use
  Company Number: 2008BH010917

PATIENT
  Age: 48 Year
  Sex: Male

DRUGS (2)
  1. DIANEAL [Suspect]
     Indication: PERITONEAL DIALYSIS
     Dosage: 18 L;EVERY DAY;IP
     Route: 033
     Dates: start: 19980101
  2. DIANEAL [Suspect]
     Indication: PERITONEAL DIALYSIS
     Dosage: 3 L;EVERY DAY;IP
     Route: 033
     Dates: start: 19980101

REACTIONS (2)
  - PERITONEAL DIALYSIS COMPLICATION [None]
  - PERITONITIS BACTERIAL [None]
